FAERS Safety Report 11584998 (Version 3)
Quarter: 2016Q1

REPORT INFORMATION
  Report Type: Spontaneous
  Country: DK (occurrence: DK)
  Receive Date: 20151001
  Receipt Date: 20160201
  Transmission Date: 20160525
  Serious: Yes (Hospitalization, Disabling)
  Sender: FDA-Public Use
  Company Number: DK-ABBVIE-15K-044-1333206-00

PATIENT
  Age: 71 Year
  Sex: Female
  Weight: 85 kg

DRUGS (12)
  1. PREDNISOLON [Concomitant]
     Active Substance: PREDNISOLONE
     Indication: RHEUMATOID ARTHRITIS
     Dosage: HIGH DOSE
     Dates: start: 20120101
  2. VITAMIN D [Concomitant]
     Active Substance: CHOLECALCIFEROL
     Indication: OSTEOPOROSIS PROPHYLAXIS
     Dates: start: 20120101
  3. SAROTEN [Concomitant]
     Active Substance: AMITRIPTYLINE
     Indication: NEURALGIA
     Dates: start: 19940101
  4. CHLORZOXAZONE. [Concomitant]
     Active Substance: CHLORZOXAZONE
     Indication: NEURALGIA
     Dates: start: 19940101
  5. PINEX [Concomitant]
     Active Substance: ACETAMINOPHEN
     Indication: NEURALGIA
  6. RIVOTRIL [Concomitant]
     Active Substance: CLONAZEPAM
     Indication: NEURALGIA
     Dates: start: 19940101
  7. CALCIUM [Concomitant]
     Active Substance: CALCIUM
     Indication: OSTEOPOROSIS PROPHYLAXIS
     Dates: start: 20120101
  8. HUMIRA [Suspect]
     Active Substance: ADALIMUMAB
     Indication: RHEUMATOID ARTHRITIS
     Route: 058
     Dates: start: 20140701, end: 20140919
  9. TILCOTIL [Concomitant]
     Active Substance: TENOXICAM
     Indication: NEURALGIA
     Dates: start: 19940101
  10. ANAFRANIL [Concomitant]
     Active Substance: CLOMIPRAMINE HYDROCHLORIDE
     Indication: NEURALGIA
     Dates: start: 19940101
  11. CONTALGIN [Concomitant]
     Active Substance: MORPHINE SULFATE
     Indication: NEURALGIA
     Dates: start: 19940101
  12. KETOGAN [Concomitant]
     Active Substance: KETOBEMIDONE HYDROCHLORIDE
     Indication: NEURALGIA
     Dates: start: 19940101

REACTIONS (11)
  - Hemianopia [Unknown]
  - Pneumonia pneumococcal [Recovered/Resolved]
  - Abasia [Not Recovered/Not Resolved]
  - Hemiplegia [Not Recovered/Not Resolved]
  - Depression [Not Recovered/Not Resolved]
  - Meningitis pneumococcal [Recovered/Resolved]
  - Illiteracy [Not Recovered/Not Resolved]
  - Cerebral thrombosis [Recovered/Resolved with Sequelae]
  - Memory impairment [Not Recovered/Not Resolved]
  - Cerebrovascular accident [Not Recovered/Not Resolved]
  - Hemiparesis [Recovered/Resolved with Sequelae]

NARRATIVE: CASE EVENT DATE: 20140919
